FAERS Safety Report 8838668 (Version 1)
Quarter: 2012Q4

REPORT INFORMATION
  Report Type: 
  Country: US (occurrence: US)
  Receive Date: 20121012
  Receipt Date: 20121012
  Transmission Date: 20130627
  Serious: Yes (Hospitalization)
  Sender: FDA-Public Use
  Company Number: US-TEVA-363555USA

PATIENT
  Age: 72 None
  Sex: Male
  Weight: 99.88 kg

DRUGS (2)
  1. CEFADROXIL [Suspect]
     Indication: INFECTION
     Dosage: 1000 Milligram Daily;
     Dates: start: 20120909, end: 20120921
  2. METOPROLOL [Concomitant]
     Indication: HYPERTENSION
     Dosage: 25 Milligram Daily;

REACTIONS (3)
  - Erythema [Unknown]
  - Infection [Unknown]
  - Drug ineffective [Unknown]
